FAERS Safety Report 12857272 (Version 1)
Quarter: 2016Q4

REPORT INFORMATION
  Report Type: Not Available
  Country: AU (occurrence: AU)
  Receive Date: 20161018
  Receipt Date: 20161018
  Transmission Date: 20170207
  Serious: Yes (Hospitalization)
  Sender: FDA-Public Use
  Company Number: AU-PURDUE PHARMA-GBR-2016-0040516

PATIENT
  Age: 35 Year
  Sex: Male

DRUGS (9)
  1. SOLIRIS [Suspect]
     Active Substance: ECULIZUMAB
     Dosage: 900 MG, WEEKLY
     Route: 042
  2. AMOXYCILLIN                        /00249601/ [Concomitant]
     Active Substance: AMOXICILLIN
  3. HEROIN [Concomitant]
     Active Substance: DIACETYLMORPHINE
  4. PREDNISOLONE. [Concomitant]
     Active Substance: PREDNISOLONE
  5. PARACETAMOL [Concomitant]
     Active Substance: ACETAMINOPHEN
  6. RISPERIDONE. [Concomitant]
     Active Substance: RISPERIDONE
  7. SOLIRIS [Suspect]
     Active Substance: ECULIZUMAB
     Indication: HAEMOLYTIC URAEMIC SYNDROME
     Dosage: UNK
     Route: 042
  8. SOLIRIS [Suspect]
     Active Substance: ECULIZUMAB
     Dosage: 1200 MG, QOW
     Route: 042
  9. OXYCONTIN [Suspect]
     Active Substance: OXYCODONE HYDROCHLORIDE
     Indication: PRODUCT USED FOR UNKNOWN INDICATION
     Dosage: UNK
     Route: 042

REACTIONS (3)
  - Renal impairment [Recovering/Resolving]
  - Haemoglobin decreased [Recovering/Resolving]
  - Incorrect route of drug administration [Unknown]
